FAERS Safety Report 10064328 (Version 2)
Quarter: 2014Q2

REPORT INFORMATION
  Report Type: Spontaneous
  Country: JP (occurrence: JP)
  Receive Date: 20140408
  Receipt Date: 20140502
  Transmission Date: 20141212
  Serious: Yes (Hospitalization)
  Sender: FDA-Public Use
  Company Number: JP-ELI_LILLY_AND_COMPANY-JP201404001003

PATIENT
  Age: 70 Year
  Sex: Female

DRUGS (5)
  1. ZYPREXA [Suspect]
     Indication: NAUSEA
     Dosage: UNK
     Route: 048
     Dates: start: 20140121, end: 20140202
  2. ZYPREXA [Suspect]
     Indication: DECREASED APPETITE
  3. FENTANYL                           /00174602/ [Concomitant]
     Indication: CANCER PAIN
     Dosage: UNK
     Route: 062
     Dates: start: 201312
  4. MAGLAX [Concomitant]
     Indication: CONSTIPATION
     Dosage: 330 MG, TID
     Route: 048
     Dates: start: 20140121
  5. LAXOBERON [Concomitant]
     Indication: CONSTIPATION
     Dosage: UNK
     Route: 048
     Dates: start: 20140121

REACTIONS (2)
  - Delirium [Recovered/Resolved]
  - Off label use [Recovered/Resolved]
